FAERS Safety Report 11881642 (Version 2)
Quarter: 2016Q1

REPORT INFORMATION
  Report Type: Spontaneous
  Country: US (occurrence: US)
  Receive Date: 20151231
  Receipt Date: 20160204
  Transmission Date: 20160526
  Serious: No
  Sender: FDA-Public Use
  Company Number: US-BAYER-2015-496293

PATIENT
  Age: 67 Year
  Sex: Male
  Weight: 77.98 kg

DRUGS (10)
  1. MAGNESIUM [Concomitant]
     Active Substance: MAGNESIUM
  2. MIRALAX [Suspect]
     Active Substance: POLYETHYLENE GLYCOL 3350
     Indication: CONSTIPATION
     Dosage: 1 DF, BID
     Route: 048
     Dates: start: 20151220
  3. COENZYME Q10 [Concomitant]
     Active Substance: UBIDECARENONE
  4. VITAMIN D3 [Concomitant]
     Active Substance: CHOLECALCIFEROL
  5. LIPITOR [Concomitant]
     Active Substance: ATORVASTATIN CALCIUM
  6. CHONDROITIN [Concomitant]
     Active Substance: CHONDROITIN
  7. ZETIA [Concomitant]
     Active Substance: EZETIMIBE
  8. BABY ASPIRIN [Concomitant]
     Active Substance: ASPIRIN
  9. ATRAMION [Concomitant]
  10. FIBERCON [Concomitant]
     Active Substance: CALCIUM POLYCARBOPHIL

REACTIONS (2)
  - Product use issue [None]
  - Product label issue [None]

NARRATIVE: CASE EVENT DATE: 201512
